FAERS Safety Report 14862898 (Version 3)
Quarter: 2019Q3

REPORT INFORMATION
  Report Type: Spontaneous
  Country: CA (occurrence: CA)
  Receive Date: 20180508
  Receipt Date: 20190916
  Transmission Date: 20191004
  Serious: Yes (Hospitalization)
  Sender: FDA-Public Use
  Company Number: CA-TEVA-2018-CA-888514

PATIENT
  Age: 52 Year
  Sex: Female

DRUGS (12)
  1. DEHYDROEPIANDROSTERONE [Suspect]
     Active Substance: PRASTERONE
     Route: 067
  2. CLARITIN [Concomitant]
     Active Substance: LORATADINE
  3. GLICLAZIDE [Concomitant]
     Active Substance: GLICLAZIDE
  4. ESTRADIOL. [Suspect]
     Active Substance: ESTRADIOL
     Indication: PRODUCT USED FOR UNKNOWN INDICATION
     Route: 065
  5. LORATADINE TABLETS 10MG [Suspect]
     Active Substance: LORATADINE
     Indication: PRODUCT USED FOR UNKNOWN INDICATION
     Route: 048
  6. BUDESONIDE. [Concomitant]
     Active Substance: BUDESONIDE
  7. BUDESONIDE. [Suspect]
     Active Substance: BUDESONIDE
     Indication: PRODUCT USED FOR UNKNOWN INDICATION
     Dosage: 1 DOSAGE FORMS DAILY;
     Route: 065
  8. THYROID HORMONES [Suspect]
     Active Substance: UNSPECIFIED INGREDIENT
     Indication: PRODUCT USED FOR UNKNOWN INDICATION
     Route: 065
  9. PROGESTERONE. [Suspect]
     Active Substance: PROGESTERONE
     Indication: MENOPAUSE
     Route: 065
  10. LORATADINE/PSEUDOEPHEDRINE SULFATE [Concomitant]
     Active Substance: LORATADINE\PSEUDOEPHEDRINE SULFATE
     Indication: PRODUCT USED FOR UNKNOWN INDICATION
  11. CRINONE [Suspect]
     Active Substance: PROGESTERONE
     Indication: MENOPAUSE
     Route: 065
  12. PRASTERONE [Suspect]
     Active Substance: PRASTERONE
     Indication: MENOPAUSE
     Route: 067

REACTIONS (10)
  - Butterfly rash [Unknown]
  - Photosensitivity reaction [Unknown]
  - Tinnitus [Unknown]
  - Head discomfort [Unknown]
  - Periorbital oedema [Unknown]
  - Rash [Unknown]
  - Feeling hot [Unknown]
  - Swelling face [Unknown]
  - Cellulitis [Unknown]
  - Product use in unapproved indication [Unknown]
